FAERS Safety Report 6657113-3 (Version None)
Quarter: 2010Q1

REPORT INFORMATION
  Report Type: 
  Country: None (occurrence: None)
  Receive Date: 20100330
  Receipt Date: 20100324
  Transmission Date: 20100710
  Serious: Yes (Death, Other)
  Sender: FDA-Public Use
  Company Number: JP-JNJFOC-20100307541

PATIENT
  Sex: Male
  Weight: 50 kg

DRUGS (8)
  1. DUROTEP [Suspect]
     Indication: CANCER PAIN
     Route: 062
  2. OXYCONTIN [Concomitant]
     Indication: CANCER PAIN
     Route: 048
  3. OXYCONTIN [Concomitant]
     Route: 048
  4. OXYCODONE HCL [Concomitant]
     Indication: CANCER PAIN
     Route: 048
  5. SERENACE [Concomitant]
     Indication: VOMITING
     Route: 042
  6. SERENACE [Concomitant]
     Indication: NAUSEA
     Route: 042
  7. SERENACE [Concomitant]
     Indication: DELIRIUM
     Route: 042
  8. ZOMETA [Concomitant]
     Route: 042

REACTIONS (4)
  - DELIRIUM [None]
  - GASTRIC CANCER [None]
  - NAUSEA [None]
  - VOMITING [None]
